FAERS Safety Report 6300036-X (Version None)
Quarter: 2009Q3

REPORT INFORMATION
  Report Type: 
  Country: None (occurrence: None)
  Receive Date: 20090803
  Receipt Date: 20090720
  Transmission Date: 20100115
  Serious: Yes (Disabling)
  Sender: FDA-Public Use
  Company Number: ADR8152009

PATIENT
  Sex: Female

DRUGS (5)
  1. ALENDRONIC ACID (MFR: UNKNOWN) [Suspect]
     Indication: OSTEOPOROSIS
     Dosage: 70 MG ORAL
     Route: 048
     Dates: start: 20010711, end: 20081113
  2. BENDROFLUAZIDE [Concomitant]
  3. LOSARTAN [Concomitant]
  4. PROPRANOLOL [Concomitant]
  5. SIMVASTATIN [Concomitant]

REACTIONS (3)
  - DIZZINESS [None]
  - MIGRAINE WITH AURA [None]
  - VISUAL IMPAIRMENT [None]
